FAERS Safety Report 26128949 (Version 1)
Quarter: 2025Q4

REPORT INFORMATION
  Report Type: Spontaneous
  Country: US (occurrence: US)
  Receive Date: 20251208
  Receipt Date: 20251208
  Transmission Date: 20260118
  Serious: Yes (Disabling, Other)
  Sender: ACCORD
  Company Number: US-Accord-516619

PATIENT
  Age: 84 Year
  Sex: Female
  Weight: 84.5 kg

DRUGS (1)
  1. HYDROXYCHLOROQUINE [Suspect]
     Active Substance: HYDROXYCHLOROQUINE
     Indication: Rheumatoid arthritis
     Dosage: 4.7 MG/KG/DAY BASED ON RBW, 6.7 MG/KG/DAY BASED ON IBW

REACTIONS (3)
  - Retinopathy [Not Recovered/Not Resolved]
  - Chronic kidney disease [Unknown]
  - Visual field defect [Not Recovered/Not Resolved]
